FAERS Safety Report 8119604-8 (Version None)
Quarter: 2012Q1

REPORT INFORMATION
  Report Type: 
  Country: None (occurrence: None)
  Receive Date: 20120207
  Receipt Date: 20120201
  Transmission Date: 20120608
  Serious: Yes (Hospitalization)
  Sender: FDA-Public Use
  Company Number: PHHO2011DE019717

PATIENT
  Sex: Male
  Weight: 97.5 kg

DRUGS (7)
  1. IMATINIB MESYLATE [Suspect]
     Indication: PULMONARY ARTERIAL HYPERTENSION
     Dosage: 200 MG, BID
     Route: 048
     Dates: start: 20100528, end: 20111122
  2. SILDENAFIL [Concomitant]
     Indication: PULMONARY ARTERIAL HYPERTENSION
     Dosage: 40 MG, TID
     Route: 048
     Dates: start: 20070601
  3. TRACLEER [Concomitant]
     Indication: PULMONARY ARTERIAL HYPERTENSION
     Dosage: 125 MG, BID
     Route: 048
     Dates: start: 20060201
  4. AQUAPHOR [Concomitant]
     Indication: OEDEMA
     Dosage: 10 MG, BID
     Route: 048
  5. LASIX [Concomitant]
     Indication: OEDEMA
     Dosage: 20 MG, BID
     Route: 048
  6. KALIUM ^VERLA^ [Concomitant]
     Dosage: UNK
  7. MARCUMAR [Concomitant]
     Indication: PULMONARY ARTERIAL HYPERTENSION
     Dosage: AFTER INR
     Route: 048
     Dates: end: 20111123

REACTIONS (1)
  - SUBDURAL HAEMATOMA [None]
